FAERS Safety Report 11839275 (Version 2)
Quarter: 2016Q4

REPORT INFORMATION
  Report Type: Spontaneous
  Country: US (occurrence: US)
  Receive Date: 20151216
  Receipt Date: 20161123
  Transmission Date: 20170206
  Serious: No
  Sender: FDA-Public Use
  Company Number: US-TEVA-602291USA

PATIENT
  Age: 66 Year
  Sex: Female

DRUGS (3)
  1. OXYBUTYNIN [Suspect]
     Active Substance: OXYBUTYNIN
     Indication: HYPERTONIC BLADDER
     Dosage: 5 MILLIGRAM DAILY;
     Route: 048
     Dates: start: 20150516, end: 20150601
  2. YM178 (MIRABEGRON) [Suspect]
     Active Substance: MIRABEGRON
     Indication: HYPERTONIC BLADDER
     Route: 048
     Dates: start: 20150601
  3. YM178 (MIRABEGRON) [Suspect]
     Active Substance: MIRABEGRON
     Indication: MIXED INCONTINENCE

REACTIONS (4)
  - Dry mouth [Recovered/Resolved]
  - Vision blurred [Recovered/Resolved]
  - Constipation [Recovered/Resolved]
  - Somnolence [Recovered/Resolved]

NARRATIVE: CASE EVENT DATE: 20150601
